FAERS Safety Report 6891585-4 (Version None)
Quarter: 2010Q3

REPORT INFORMATION
  Report Type: 
  Country: None (occurrence: None)
  Receive Date: 20100731
  Receipt Date: 20070802
  Transmission Date: 20110219
  Serious: No
  Sender: FDA-Public Use
  Company Number: US-PFIZER INC-2007064603

PATIENT
  Sex: Female

DRUGS (3)
  1. NORVASC [Suspect]
     Indication: HYPERTENSION
     Route: 048
     Dates: start: 20070201, end: 20070701
  2. HYDROCORTISONE [Concomitant]
     Dates: end: 20070501
  3. COUMADIN [Concomitant]
     Dates: end: 20070601

REACTIONS (2)
  - ONYCHOCLASIS [None]
  - ONYCHOLYSIS [None]
